FAERS Safety Report 4298019-7 (Version None)
Quarter: 2004Q1

REPORT INFORMATION
  Report Type: 
  Country: None (occurrence: None)
  Receive Date: 20040218
  Receipt Date: 20011002
  Transmission Date: 20041129
  Serious: Yes (Other)
  Sender: FDA-Public Use
  Company Number: US-BRISTOL-MYERS SQUIBB COMPANY-11470846

PATIENT
  Age: 57 Year
  Sex: Female
  Weight: 84 kg

DRUGS (11)
  1. STADOL [Suspect]
     Dosage: DURATION: LESS THAN 1 YEAR.
     Route: 045
  2. STADOL [Suspect]
     Dosage: DURATION: LESS THAN 1 YEAR.
     Route: 042
  3. CODEINE + ACETAMINOPHEN [Concomitant]
  4. ULTRAM [Concomitant]
  5. DIAZEPAM [Concomitant]
  6. DARVOCET-N 100 [Concomitant]
  7. PROMETHAZINE [Concomitant]
  8. HYDROCODONE + ACETAMINOPHEN [Concomitant]
  9. PROZAC [Concomitant]
  10. XANAX [Concomitant]
  11. MEPERGAN FORTIS [Concomitant]

REACTIONS (3)
  - DEPENDENCE [None]
  - DIZZINESS [None]
  - DRUG ADDICT [None]
